FAERS Safety Report 5938478-4 (Version None)
Quarter: 2008Q4

REPORT INFORMATION
  Report Type: 
  Country: None (occurrence: None)
  Receive Date: 20081103
  Receipt Date: 20081023
  Transmission Date: 20090506
  Serious: Yes (Hospitalization)
  Sender: FDA-Public Use
  Company Number: NL-AMGEN-UK307539

PATIENT
  Sex: Female
  Weight: 66 kg

DRUGS (3)
  1. NEULASTA [Suspect]
     Indication: CHEMOTHERAPY
     Route: 065
     Dates: start: 20080831, end: 20080831
  2. UNSPECIFIED ANTINEOPLASTIC AGENT [Concomitant]
  3. THYRAX [Concomitant]

REACTIONS (3)
  - BONE PAIN [None]
  - DYSPNOEA [None]
  - HYPOKINESIA [None]
